FAERS Safety Report 10569530 (Version 2)
Quarter: 2014Q4

REPORT INFORMATION
  Report Type: Spontaneous
  Country: US (occurrence: US)
  Receive Date: 20141106
  Receipt Date: 20141106
  Transmission Date: 20150529
  Serious: Yes (Other)
  Sender: FDA-Public Use
  Company Number: US-B.I. PHARMACEUTICALS,INC./RIDGEFIELD-2014-BI-47205BP

PATIENT
  Age: 79 Year
  Sex: Male
  Weight: 108.86 kg

DRUGS (5)
  1. AMIODARONE [Concomitant]
     Active Substance: AMIODARONE
     Indication: ATRIAL FIBRILLATION
     Route: 065
     Dates: end: 20111108
  2. ASA [Suspect]
     Active Substance: ASPIRIN
     Indication: PRODUCT USED FOR UNKNOWN INDICATION
     Route: 065
  3. PRADAXA [Suspect]
     Active Substance: DABIGATRAN ETEXILATE MESYLATE
     Indication: ATRIAL FIBRILLATION
     Route: 065
  4. METOPROLOL [Suspect]
     Active Substance: METOPROLOL
     Indication: PRODUCT USED FOR UNKNOWN INDICATION
     Route: 065
     Dates: end: 2011
  5. PREDNISOLONE. [Suspect]
     Active Substance: PREDNISOLONE
     Indication: PRODUCT USED FOR UNKNOWN INDICATION
     Route: 065

REACTIONS (13)
  - Myocardial ischaemia [Unknown]
  - Hypotension [Unknown]
  - Pleural effusion [Unknown]
  - Sleep apnoea syndrome [Not Recovered/Not Resolved]
  - Diastolic dysfunction [Unknown]
  - Aortic arteriosclerosis [Unknown]
  - Coronary artery disease [Unknown]
  - Pleural effusion [Unknown]
  - Mitral valve incompetence [Unknown]
  - Dressler^s syndrome [Unknown]
  - Fluid retention [Unknown]
  - Type 2 diabetes mellitus [Unknown]
  - Gastrointestinal haemorrhage [Unknown]

NARRATIVE: CASE EVENT DATE: 2011
